FAERS Safety Report 5699368-8 (Version None)
Quarter: 2008Q2

REPORT INFORMATION
  Report Type: 
  Country: None (occurrence: None)
  Receive Date: 20080404
  Receipt Date: 20080328
  Transmission Date: 20081010
  Serious: Yes (Hospitalization)
  Sender: FDA-Public Use
  Company Number: URSO-2007-205-F-UP #3

PATIENT
  Age: 69 Year
  Sex: Male

DRUGS (18)
  1. URSO 250 [Suspect]
     Indication: PORTAL VEIN THROMBOSIS
     Dosage: 600 MG, ORAL
     Route: 048
     Dates: start: 20040907, end: 20070705
  2. FURTULON (DOXIFLURIDINE) [Suspect]
     Indication: GASTRIC CANCER
     Dosage: 600 MG, ORAL
     Route: 048
     Dates: start: 20050113, end: 20050506
  3. FURTULON (DOXIFLURIDINE) [Suspect]
     Indication: GASTRIC CANCER
     Dosage: 600 MG, ORAL
     Route: 048
     Dates: start: 20051118, end: 20060203
  4. FURTULON (DOXIFLURIDINE) [Suspect]
     Indication: GASTRIC CANCER
     Dosage: 600 MG, ORAL
     Route: 048
     Dates: start: 20060307, end: 20060428
  5. ALLOPURINOL [Suspect]
     Indication: HYPERURICAEMIA
     Dosage: 100 MG, ORAL
     Route: 048
     Dates: start: 20070301, end: 20070809
  6. FLUOROURACIL [Suspect]
     Dosage: ORAL
     Route: 048
  7. METHOTREXATE [Suspect]
  8. CEFAMEZIN ALPHA (CEFAZOLIN SODIUM) [Concomitant]
  9. CEREKINON (TRIMEBUTINE MALEATE) 300 MG [Concomitant]
  10. MINOCYCLINE HCL [Concomitant]
  11. DOCETAXEL HYDRATE (DOCETAXEL HYDRATE) [Concomitant]
  12. WARFARIN (WARFARIN POTASSIUM) [Concomitant]
  13. ALDACTONE [Concomitant]
  14. DIART (AZOSEMIDE) [Concomitant]
  15. URINORM (BENZBROMARONE) [Concomitant]
  16. MIYA BM (CLOSTRIDIUM BUTYRICUM) [Concomitant]
  17. CHOCOLA A (VITAMIN A) 50 KIU/1 ML [Concomitant]
  18. JUVELA 100MG/2MG [Concomitant]

REACTIONS (7)
  - ALVEOLITIS [None]
  - ASTHMA [None]
  - DEHYDRATION [None]
  - IDIOPATHIC PULMONARY FIBROSIS [None]
  - LYMPHOCYTE STIMULATION TEST POSITIVE [None]
  - PNEUMONITIS [None]
  - PORTAL VEIN THROMBOSIS [None]
